FAERS Safety Report 8880988 (Version 1)
Quarter: 2012Q4

REPORT INFORMATION
  Report Type: 
  Country: US (occurrence: US)
  Receive Date: 20121101
  Receipt Date: 20121101
  Transmission Date: 20130627
  Serious: Yes (Hospitalization, Other)
  Sender: FDA-Public Use
  Company Number: US-PFIZER INC-2012267184

PATIENT
  Age: 65 Year
  Sex: Male
  Weight: 74.83 kg

DRUGS (1)
  1. REVATIO [Suspect]
     Indication: PULMONARY HYPERTENSION
     Dosage: 80 mg (four 20mg), 3x/day
     Route: 048
     Dates: start: 2011

REACTIONS (2)
  - Cardiac failure [Recovering/Resolving]
  - Off label use [Unknown]
